FAERS Safety Report 23334119 (Version 1)
Quarter: 2023Q4

REPORT INFORMATION
  Report Type: Spontaneous
  Country: US (occurrence: US)
  Receive Date: 20231223
  Receipt Date: 20231223
  Transmission Date: 20240109
  Serious: No
  Sender: FDA-Public Use
  Company Number: US-ABBVIE-5545646

PATIENT
  Age: 52 Year
  Sex: Male

DRUGS (1)
  1. HUMIRA [Suspect]
     Active Substance: ADALIMUMAB
     Indication: Inflammation
     Dosage: FORM STRENGTH: 40 MG
     Route: 058
     Dates: start: 202306

REACTIONS (5)
  - Off label use [Unknown]
  - Injection site discharge [Not Recovered/Not Resolved]
  - Injection site reaction [Unknown]
  - Device issue [Not Recovered/Not Resolved]
  - Injection site reaction [Unknown]

NARRATIVE: CASE EVENT DATE: 20230601
